FAERS Safety Report 21302577 (Version 1)
Quarter: 2022Q3

REPORT INFORMATION
  Report Type: Spontaneous
  Country: DE (occurrence: DE)
  Receive Date: 20220907
  Receipt Date: 20220907
  Transmission Date: 20221027
  Serious: Yes (Death, Life-Threatening, Congenital Anomaly, Other)
  Sender: FDA-Public Use
  Company Number: DE-NOVARTISPH-NVSC2022DE200958

PATIENT
  Sex: Male

DRUGS (7)
  1. ZOPICLONE [Suspect]
     Active Substance: ZOPICLONE
     Indication: Foetal exposure during pregnancy
     Dosage: (STARTED FROM 05-MAR-2021 TO 01-APR-2021, MATERNAL DOSE: 7.5 MG/ D, 0.-3.6. GESTATIONAL WEEK)
     Route: 064
  2. PRAMIPEXOLE [Suspect]
     Active Substance: PRAMIPEXOLE
     Indication: Foetal exposure during pregnancy
     Dosage: (MATERNAL DOSE: 0.54 [MG/D ]/ IF REQUIRED, 0.36 TO 0.54 MG DAILY), (0.-17.2 GESTATIONAL WEEK)
     Route: 064
  3. METFORMIN [Suspect]
     Active Substance: METFORMIN HYDROCHLORIDE
     Indication: Foetal exposure during pregnancy
     Dosage: (MATERNAL DOSE: UNK, 0. - 7.3. GESTATIONAL WEEK)
     Route: 064
  4. TILIDINE [Suspect]
     Active Substance: TILIDINE
     Indication: Foetal exposure during pregnancy
     Dosage: (MATERNAL DOSE: 100 [MG/D ], (0. - 3.6. GESTATIONAL WEEK)
     Route: 064
  5. HUMALOG [Concomitant]
     Active Substance: INSULIN LISPRO
     Indication: Foetal exposure during pregnancy
     Dosage: (MATERNAL DOSE: UNK, 7.4.- 17.2. GESTATIONAL WEEK)
     Route: 064
  6. LEVEMIR [Concomitant]
     Active Substance: INSULIN DETEMIR
     Indication: Foetal exposure during pregnancy
     Dosage: (MATERNAL DOSE: UNK, 7.4.- 17.2. GESTATIONAL WEEK)
     Route: 064
  7. OPIPRAMOL [Concomitant]
     Active Substance: OPIPRAMOL
     Indication: Foetal exposure during pregnancy
     Dosage: (MATERNAL DOSE: 100 [MG/D (BIS 50) , (7.3. - 17.2. GESTATIONAL WEEK)
     Route: 064

REACTIONS (6)
  - Renal aplasia [Fatal]
  - Congenital musculoskeletal disorder of limbs [Not Recovered/Not Resolved]
  - Heart disease congenital [Not Recovered/Not Resolved]
  - VACTERL syndrome [Not Recovered/Not Resolved]
  - Hemivertebra [Not Recovered/Not Resolved]
  - Foetal exposure during pregnancy [Unknown]
